FAERS Safety Report 4421574-0 (Version None)
Quarter: 2004Q3

REPORT INFORMATION
  Report Type: 
  Country: None (occurrence: None)
  Receive Date: 20040804
  Receipt Date: 20040712
  Transmission Date: 20050211
  Serious: Yes (Hospitalization, Other)
  Sender: FDA-Public Use
  Company Number: USA040669272

PATIENT
  Sex: Female

DRUGS (1)
  1. EVISTA [Suspect]

REACTIONS (5)
  - CARDIAC PACEMAKER BATTERY REPLACEMENT [None]
  - GASTRIC DISORDER [None]
  - GASTROOESOPHAGEAL REFLUX DISEASE [None]
  - MALAISE [None]
  - MUSCLE CRAMP [None]
